FAERS Safety Report 4313409-1 (Version None)
Quarter: 2004Q1

REPORT INFORMATION
  Report Type: 
  Country: None (occurrence: None)
  Receive Date: 20040305
  Receipt Date: 20040305
  Transmission Date: 20041129
  Serious: No
  Sender: FDA-Public Use
  Company Number: None

PATIENT
  Sex: Female
  Weight: 138.5 kg

DRUGS (5)
  1. PLAVIX [Suspect]
     Indication: TRANSIENT ISCHAEMIC ATTACK
     Dosage: 75 MG PO Q DAY
     Route: 048
  2. REMERON [Concomitant]
  3. PRAVACHOL [Concomitant]
  4. CELEBREX [Concomitant]
  5. TIMOPTIC [Concomitant]

REACTIONS (4)
  - DRUG LEVEL INCREASED [None]
  - FALL [None]
  - HIP FRACTURE [None]
  - OSTEOPOROSIS [None]
